FAERS Safety Report 16931286 (Version 1)
Quarter: 2019Q4

REPORT INFORMATION
  Report Type: Spontaneous
  Country: PR (occurrence: PR)
  Receive Date: 20191017
  Receipt Date: 20191017
  Transmission Date: 20200122
  Serious: Yes (Death, Other)
  Sender: FDA-Public Use
  Company Number: PR-ADAMAS PHARMA, LLC-2019ADA02237

PATIENT
  Sex: Male

DRUGS (7)
  1. EFFEXOR [Concomitant]
     Active Substance: VENLAFAXINE HYDROCHLORIDE
  2. TRILEPTAL [Concomitant]
     Active Substance: OXCARBAZEPINE
     Dosage: UNK MG
  3. VIMPAT [Concomitant]
     Active Substance: LACOSAMIDE
     Dosage: UNK MG
  4. LIPITOR [Concomitant]
     Active Substance: ATORVASTATIN CALCIUM
  5. GOCOVRI [Suspect]
     Active Substance: AMANTADINE
     Indication: DYSKINESIA
     Dosage: 274 MG, 1X/DAY AT BEDTIME
     Route: 048
     Dates: start: 20180606, end: 2019
  6. KLONOPIN [Concomitant]
     Active Substance: CLONAZEPAM
  7. RESTORIL [Concomitant]
     Active Substance: TEMAZEPAM

REACTIONS (2)
  - Seizure [Unknown]
  - Death [Fatal]

NARRATIVE: CASE EVENT DATE: 2019
